FAERS Safety Report 9010009 (Version 1)
Quarter: 2013Q1

REPORT INFORMATION
  Report Type: Spontaneous
  Country: US (occurrence: US)
  Receive Date: 20130110
  Receipt Date: 20130110
  Transmission Date: 20140127
  Serious: Yes (Other)
  Sender: FDA-Public Use
  Company Number: 2013SP000046

PATIENT
  Age: 65 Year
  Sex: Female
  Weight: 69 kg

DRUGS (11)
  1. ZETONNA [Suspect]
     Indication: UPPER-AIRWAY COUGH SYNDROME
     Route: 045
     Dates: start: 20121213
  2. ZETONNA [Suspect]
     Indication: COUGH
     Route: 045
     Dates: start: 20121213
  3. ZETONNA [Suspect]
     Indication: SINUS DISORDER
     Route: 045
     Dates: start: 20121213
  4. ZETONNA [Suspect]
     Indication: UPPER-AIRWAY COUGH SYNDROME
     Route: 045
     Dates: start: 20121213
  5. ZETONNA [Suspect]
     Indication: COUGH
     Route: 045
     Dates: start: 20121213
  6. ZETONNA [Suspect]
     Indication: SINUS DISORDER
     Route: 045
     Dates: start: 20121213
  7. DULERA [Suspect]
     Indication: COUGH
     Route: 055
     Dates: start: 201212
  8. BAYER [Suspect]
     Indication: PRODUCT USED FOR UNKNOWN INDICATION
     Dates: start: 201212, end: 201301
  9. ADVAIR [Concomitant]
     Indication: PRODUCT USED FOR UNKNOWN INDICATION
     Dates: end: 201212
  10. NAPROXEN [Concomitant]
     Indication: PRODUCT USED FOR UNKNOWN INDICATION
  11. VITAMINS NOS [Concomitant]
     Indication: PRODUCT USED FOR UNKNOWN INDICATION

REACTIONS (2)
  - Deafness [Not Recovered/Not Resolved]
  - Tinnitus [Not Recovered/Not Resolved]
